FAERS Safety Report 14922923 (Version 1)
Quarter: 2018Q2

REPORT INFORMATION
  Report Type: Spontaneous
  Country: US (occurrence: US)
  Receive Date: 20180522
  Receipt Date: 20180522
  Transmission Date: 20180711
  Serious: Yes (Death)
  Sender: FDA-Public Use
  Company Number: PHHY2018US007679

PATIENT
  Sex: Male

DRUGS (3)
  1. METHOTREXATE. [Suspect]
     Active Substance: METHOTREXATE
     Indication: PRODUCT USED FOR UNKNOWN INDICATION
     Route: 065
  2. GP2017 [Suspect]
     Active Substance: INVESTIGATIONAL BIOSIMILARS
     Indication: PRODUCT USED FOR UNKNOWN INDICATION
     Route: 065
  3. PREDNISONE. [Suspect]
     Active Substance: PREDNISONE
     Indication: PRODUCT USED FOR UNKNOWN INDICATION
     Route: 065

REACTIONS (10)
  - Wheezing [Fatal]
  - Transaminases increased [Fatal]
  - Metabolic acidosis [Fatal]
  - Respiratory failure [Fatal]
  - Respiratory alkalosis [Fatal]
  - Thrombocytopenia [Fatal]
  - Leukopenia [Fatal]
  - Acute kidney injury [Fatal]
  - Anaemia [Fatal]
  - Viral infection [Fatal]
